FAERS Safety Report 7090279-2 (Version None)
Quarter: 2010Q4

REPORT INFORMATION
  Report Type: 
  Country: None (occurrence: None)
  Receive Date: 20101105
  Receipt Date: 20101105
  Transmission Date: 20110411
  Serious: Yes (Other)
  Sender: FDA-Public Use
  Company Number: None

PATIENT
  Age: 43 Year
  Sex: Male

DRUGS (10)
  1. OXYCODONE [Suspect]
     Dosage: 10MG EVERY 6 HOURS PO
     Route: 048
     Dates: start: 20100919, end: 20100919
  2. LISINOPRIL [Concomitant]
  3. ASPIRIN [Concomitant]
  4. VANCOMYCIN [Concomitant]
  5. OLANZAPINE [Concomitant]
  6. PIPERACILLIN SODIUM/TAZOBACTAM SODIUM [Concomitant]
  7. DIVALPROEX SODIUM [Concomitant]
  8. LABETALOL HCL [Concomitant]
  9. SULFAMETHOXAZOLE AND TRIMETHOPRIM [Concomitant]
  10. RITONAVIR/LOPINAVIR [Concomitant]

REACTIONS (1)
  - RESPIRATORY DEPRESSION [None]
